FAERS Safety Report 5726000-7 (Version None)
Quarter: 2008Q2

REPORT INFORMATION
  Report Type: 
  Country: None (occurrence: None)
  Receive Date: 20080502
  Receipt Date: 20080422
  Transmission Date: 20081010
  Serious: Yes (Congenital Anomaly, Other)
  Sender: FDA-Public Use
  Company Number: US-JNJFOC-20080204083

PATIENT

DRUGS (17)
  1. INFLIXIMAB [Suspect]
  2. INFLIXIMAB [Suspect]
  3. INFLIXIMAB [Suspect]
  4. INFLIXIMAB [Suspect]
  5. INFLIXIMAB [Suspect]
     Indication: DRUG EXPOSURE DURING PREGNANCY
  6. ACETAMINOPHEN [Concomitant]
  7. ACETAMINOPHEN [Concomitant]
  8. ACETAMINOPHEN [Concomitant]
  9. ACETAMINOPHEN [Concomitant]
     Indication: DRUG EXPOSURE DURING PREGNANCY
  10. STEROIDS [Concomitant]
  11. STEROIDS [Concomitant]
  12. STEROIDS [Concomitant]
  13. STEROIDS [Concomitant]
     Indication: DRUG EXPOSURE DURING PREGNANCY
  14. ANTIHISTAMINES [Concomitant]
  15. ANTIHISTAMINES [Concomitant]
  16. ANTIHISTAMINES [Concomitant]
  17. ANTIHISTAMINES [Concomitant]
     Indication: DRUG EXPOSURE DURING PREGNANCY

REACTIONS (1)
  - CONGENITAL ECTODERMAL DYSPLASIA [None]
